FAERS Safety Report 8774769 (Version 1)
Quarter: 2012Q4

REPORT INFORMATION
  Report Type: 
  Country: GB (occurrence: GB)
  Receive Date: 20120910
  Receipt Date: 20120910
  Transmission Date: 20130627
  Serious: Yes (Other)
  Sender: FDA-Public Use
  Company Number: GB-UCBSA-064904

PATIENT
  Age: 75 Year
  Sex: Male

DRUGS (1)
  1. CO-CODAMOL [Suspect]
     Indication: PAIN

REACTIONS (7)
  - Suicidal ideation [Unknown]
  - Decreased appetite [Unknown]
  - Constipation [Unknown]
  - Insomnia [Unknown]
  - Disorientation [Unknown]
  - Pain [Unknown]
  - Urinary retention [Unknown]
